FAERS Safety Report 9838460 (Version 2)
Quarter: 2014Q1

REPORT INFORMATION
  Report Type: Spontaneous
  Country: US (occurrence: US)
  Receive Date: 20140123
  Receipt Date: 20140123
  Transmission Date: 20141002
  Serious: Yes (Hospitalization, Other)
  Sender: FDA-Public Use
  Company Number: US-ASTELLAS-2011001737

PATIENT
  Age: 74 Year
  Sex: Female
  Weight: 70 kg

DRUGS (8)
  1. TARCEVA [Suspect]
     Indication: NON-SMALL CELL LUNG CANCER
     Dosage: 100 MG, UID/QD
     Route: 048
     Dates: start: 20110108, end: 20120501
  2. TARCEVA [Suspect]
     Dosage: 100 MG, UID/QD
     Route: 048
  3. CREON [Suspect]
     Indication: PRODUCT USED FOR UNKNOWN INDICATION
     Dosage: UNK
     Route: 065
  4. TETRACYCLINE [Concomitant]
     Indication: PRODUCT USED FOR UNKNOWN INDICATION
     Dosage: UNK
     Route: 065
  5. HIGH BLOOD PRESSURE MEDICATION [Concomitant]
     Indication: PRODUCT USED FOR UNKNOWN INDICATION
     Dosage: UNK
     Route: 065
  6. OXYCODONE / ACETAMINOPHEN [Concomitant]
     Indication: PAIN
     Dosage: 10 MG / 325 MG
     Route: 048
     Dates: start: 20121001
  7. LIDODERM [Concomitant]
     Indication: PAIN
     Dosage: UNK
     Route: 062
     Dates: start: 20121001
  8. ASPIRIN [Concomitant]
     Indication: COAGULOPATHY
     Dosage: 1 DF, UID/QD
     Route: 048

REACTIONS (12)
  - Incorrect dose administered [Unknown]
  - Oesophageal ulcer [Unknown]
  - Pancreatitis [Recovering/Resolving]
  - Pancreatitis [Unknown]
  - Pyrexia [Recovered/Resolved]
  - Dysphagia [Not Recovered/Not Resolved]
  - Eye pain [Not Recovered/Not Resolved]
  - Constipation [Not Recovered/Not Resolved]
  - Abdominal pain upper [Unknown]
  - Gastrooesophageal reflux disease [Unknown]
  - Diarrhoea [Recovered/Resolved]
  - Weight decreased [Recovered/Resolved]
